FAERS Safety Report 14046600 (Version 1)
Quarter: 2017Q4

REPORT INFORMATION
  Report Type: Spontaneous
  Country: TR (occurrence: TR)
  Receive Date: 20171005
  Receipt Date: 20171005
  Transmission Date: 20180321
  Serious: Yes (Other)
  Sender: FDA-Public Use
  Company Number: TR-PFIZER INC-2860736

PATIENT
  Age: 36 Year
  Sex: Female

DRUGS (8)
  1. DEXAMETHASONE. [Suspect]
     Active Substance: DEXAMETHASONE
     Indication: T-CELL LYMPHOMA
     Dosage: 40 MG, FREQ : 1 DAY; INTERVAL : 1
  2. ETOPOSIDE. [Suspect]
     Active Substance: ETOPOSIDE
     Indication: T-CELL LYMPHOMA
     Dosage: 150 MG/M2, FOR DAYS 1, 5
  3. IDARUBICIN [Suspect]
     Active Substance: IDARUBICIN
     Indication: T-CELL LYMPHOMA
     Dosage: 10 MG/M2, FOR DAYS 1, 2
  4. MESNA. [Suspect]
     Active Substance: MESNA
     Indication: T-CELL LYMPHOMA
     Dosage: 600 MG/M2, UNK
  5. METHOTREXATE SODIUM. [Suspect]
     Active Substance: METHOTREXATE SODIUM
     Indication: PRODUCT USED FOR UNKNOWN INDICATION
     Dosage: UNK
     Route: 037
  6. CISPLATIN. [Suspect]
     Active Substance: CISPLATIN
     Indication: T-CELL LYMPHOMA
     Dosage: 100 MG/M2, FOR 24 HOURS ON THE FIRST DAY
     Route: 041
  7. CYTARABINE. [Suspect]
     Active Substance: CYTARABINE
     Indication: T-CELL LYMPHOMA
     Dosage: 2 GR/M2, PER 12 HOURS ON THE SECOND DAY
     Route: 041
  8. IFOSFAMIDE. [Suspect]
     Active Substance: IFOSFAMIDE
     Indication: T-CELL LYMPHOMA
     Dosage: 1000 MG/M2, UNK

REACTIONS (1)
  - Leukoencephalopathy [Not Recovered/Not Resolved]
